FAERS Safety Report 6718941-9 (Version None)
Quarter: 2010Q2

REPORT INFORMATION
  Report Type: 
  Country: None (occurrence: None)
  Receive Date: 20100511
  Receipt Date: 20100507
  Transmission Date: 20101027
  Serious: Yes (Life-Threatening)
  Sender: FDA-Public Use
  Company Number: FR-JNJFOC-20100502407

PATIENT
  Age: 59 Year
  Sex: Male

DRUGS (1)
  1. TAVANIC [Suspect]
     Indication: LUNG DISORDER
     Route: 048

REACTIONS (7)
  - ANAPHYLACTIC SHOCK [None]
  - ANGIOEDEMA [None]
  - HYPOTENSION [None]
  - RESPIRATORY DISORDER [None]
  - TREMOR [None]
  - URTICARIA [None]
  - VASOCONSTRICTION [None]
